FAERS Safety Report 6597751-X (Version None)
Quarter: 2010Q1

REPORT INFORMATION
  Report Type: 
  Country: None (occurrence: None)
  Receive Date: 20100216
  Receipt Date: 20100204
  Transmission Date: 20100710
  Serious: Yes (Hospitalization, Other)
  Sender: FDA-Public Use
  Company Number: 2010000779

PATIENT
  Age: 64 Year
  Sex: Male
  Weight: 71 kg

DRUGS (2)
  1. TREANDA [Suspect]
     Indication: CHRONIC LYMPHOCYTIC LEUKAEMIA
     Dosage: 166 MG, CYCLIC, INTRAVENOUS
     Route: 042
     Dates: start: 20100202, end: 20100202
  2. RITUXIMAB (RITUXIMAB) [Suspect]
     Indication: CHRONIC LYMPHOCYTIC LEUKAEMIA
     Dosage: 690 MG, CYCLIC, INTRAVENOUS
     Route: 042
     Dates: start: 20100201

REACTIONS (1)
  - ACUTE MYOCARDIAL INFARCTION [None]
